FAERS Safety Report 4949184-7 (Version None)
Quarter: 2006Q1

REPORT INFORMATION
  Report Type: 
  Country: None (occurrence: None)
  Receive Date: 20060316
  Receipt Date: 20060303
  Transmission Date: 20060701
  Serious: Yes (Hospitalization, Other)
  Sender: FDA-Public Use
  Company Number: 2006032608

PATIENT
  Age: 55 Year
  Sex: Female
  Weight: 68.0396 kg

DRUGS (2)
  1. DIFLUCAN [Suspect]
     Indication: CANDIDIASIS
     Dosage: 50 MG (50 MG, 1 IN 1 D)
     Dates: start: 20051101, end: 20060101
  2. NEXIUM [Concomitant]

REACTIONS (6)
  - ALOPECIA [None]
  - CANDIDIASIS [None]
  - CONDITION AGGRAVATED [None]
  - DRUG EFFECT DECREASED [None]
  - HYPOTRICHOSIS [None]
  - OBSTRUCTIVE CHRONIC BRONCHITIS WITH ACUTE EXACERBATION [None]
